FAERS Safety Report 24415883 (Version 1)
Quarter: 2024Q4

REPORT INFORMATION
  Report Type: Spontaneous
  Country: US (occurrence: US)
  Receive Date: 20241009
  Receipt Date: 20241009
  Transmission Date: 20250115
  Serious: Yes (Other)
  Sender: MYLAN
  Company Number: US-MYLANLABS-2024M1091188

PATIENT
  Age: 63 Year
  Sex: Female

DRUGS (4)
  1. LEUCOVORIN [Suspect]
     Active Substance: LEUCOVORIN\LEUCOVORIN CALCIUM
     Indication: Pancreatic carcinoma metastatic
     Dosage: STARTED RECEIVING TREATMENT UNDER FIRST LINE FOLFIRINOX REGIMEN
     Route: 065
     Dates: start: 202310
  2. OXALIPLATIN [Suspect]
     Active Substance: OXALIPLATIN
     Indication: Pancreatic carcinoma metastatic
     Dosage: STARTED RECEIVING TREATMENT UNDER FIRST LINE FOLFIRINOX REGIMEN
     Route: 065
     Dates: start: 202310
  3. IRINOTECAN [Suspect]
     Active Substance: IRINOTECAN
     Indication: Pancreatic carcinoma metastatic
     Dosage: STARTED RECEIVING TREATMENT UNDER FIRST LINE FOLFIRINOX REGIMEN
     Route: 065
     Dates: start: 202310
  4. FLUOROURACIL [Suspect]
     Active Substance: FLUOROURACIL
     Indication: Pancreatic carcinoma metastatic
     Dosage: STARTED RECEIVING TREATMENT UNDER FIRST LINE FOLFIRINOX REGIMEN
     Route: 065
     Dates: start: 202310

REACTIONS (1)
  - Neutropenia [Unknown]
